FAERS Safety Report 10748186 (Version 1)
Quarter: 2015Q1

REPORT INFORMATION
  Report Type: Spontaneous
  Country: JP (occurrence: JP)
  Receive Date: 20150129
  Receipt Date: 20150129
  Transmission Date: 20150721
  Serious: Yes (Other)
  Sender: FDA-Public Use
  Company Number: JP-ELI_LILLY_AND_COMPANY-JP201501009265

PATIENT
  Age: 77 Year
  Sex: Male
  Weight: 46 kg

DRUGS (2)
  1. ALIMTA [Suspect]
     Active Substance: PEMETREXED DISODIUM
     Indication: PERICARDIAL MESOTHELIOMA MALIGNANT
     Dosage: 500 MG/M2, OTHER
     Route: 042
  2. CARBOPLATIN. [Concomitant]
     Active Substance: CARBOPLATIN
     Indication: PERICARDIAL MESOTHELIOMA MALIGNANT
     Dosage: UNK
     Route: 042

REACTIONS (3)
  - Neoplasm [Unknown]
  - Bone marrow failure [Unknown]
  - Lymphadenopathy [Unknown]
